FAERS Safety Report 6853675-1 (Version None)
Quarter: 2010Q3

REPORT INFORMATION
  Report Type: 
  Country: None (occurrence: None)
  Receive Date: 20100717
  Receipt Date: 20071214
  Transmission Date: 20110219
  Serious: No
  Sender: FDA-Public Use
  Company Number: US-PFIZER INC-2007106257

PATIENT
  Sex: Male
  Weight: 77.272 kg

DRUGS (6)
  1. CHANTIX [Suspect]
     Indication: SMOKING CESSATION THERAPY
     Dates: start: 20070301
  2. TOPROL-XL [Concomitant]
     Dates: start: 20040101
  3. NIACIN [Concomitant]
     Dates: start: 20040101
  4. FOLIC ACID [Concomitant]
     Dates: start: 20040101
  5. ALTACE [Concomitant]
     Dates: start: 20040101
  6. VITAMINS [Concomitant]
     Dates: start: 20040101

REACTIONS (2)
  - BLOOD CHOLESTEROL INCREASED [None]
  - DRUG DEPENDENCE [None]
